FAERS Safety Report 5529167-9 (Version None)
Quarter: 2007Q4

REPORT INFORMATION
  Report Type: 
  Country: None (occurrence: None)
  Receive Date: 20071129
  Receipt Date: 20070320
  Transmission Date: 20080405
  Serious: No
  Sender: FDA-Public Use
  Company Number: A0644145A

PATIENT
  Sex: Male

DRUGS (1)
  1. BUPROPION HYDROCHLORIDE [Suspect]
     Dosage: 150MG TWICE PER DAY
     Route: 048
     Dates: end: 20070311

REACTIONS (8)
  - APATHY [None]
  - ASTHENIA [None]
  - CONFUSIONAL STATE [None]
  - FEELING OF RELAXATION [None]
  - LOSS OF LIBIDO [None]
  - NAUSEA [None]
  - SLEEP DISORDER [None]
  - VOMITING [None]
